FAERS Safety Report 25080810 (Version 1)
Quarter: 2025Q1

REPORT INFORMATION
  Report Type: Spontaneous
  Country: US (occurrence: US)
  Receive Date: 20250315
  Receipt Date: 20250315
  Transmission Date: 20250408
  Serious: No
  Sender: ABBVIE
  Company Number: US-ABBVIE-6169316

PATIENT
  Age: 52 Year
  Sex: Female

DRUGS (1)
  1. RINVOQ [Suspect]
     Active Substance: UPADACITINIB
     Indication: Ankylosing spondylitis
     Route: 048
     Dates: start: 20250204, end: 20250219

REACTIONS (25)
  - Illness [Unknown]
  - Arthritis [Unknown]
  - Hypotension [Unknown]
  - Visual impairment [Unknown]
  - Dizziness [Unknown]
  - Arrhythmia [Unknown]
  - Headache [Unknown]
  - Sinus disorder [Unknown]
  - Fatigue [Unknown]
  - Somnolence [Unknown]
  - Discomfort [Unknown]
  - Rheumatoid arthritis [Unknown]
  - Respiratory disorder [Unknown]
  - Neck pain [Unknown]
  - Diarrhoea [Unknown]
  - Dysphagia [Unknown]
  - Cold sweat [Unknown]
  - Decreased appetite [Unknown]
  - Hypoaesthesia oral [Unknown]
  - Dyspepsia [Unknown]
  - Skin burning sensation [Unknown]
  - Pyrexia [Unknown]
  - Feeling hot [Unknown]
  - Anxiety [Unknown]
  - Angina pectoris [Unknown]

NARRATIVE: CASE EVENT DATE: 20250101
